FAERS Safety Report 6619115-2 (Version None)
Quarter: 2010Q1

REPORT INFORMATION
  Report Type: 
  Country: None (occurrence: None)
  Receive Date: 20100308
  Receipt Date: 20100126
  Transmission Date: 20100710
  Serious: Yes (Life-Threatening, Hospitalization)
  Sender: FDA-Public Use
  Company Number: JP-PFIZER INC-2009277043

PATIENT
  Age: 69 Year
  Sex: Female

DRUGS (3)
  1. SUNITINIB MALATE [Suspect]
     Indication: METASTATIC RENAL CELL CARCINOMA
     Dosage: 25 MG, 2X/DAY (TDD50MG)
     Route: 048
     Dates: start: 20090625
  2. DEPAS [Concomitant]
     Dosage: UNK
     Route: 048
  3. GASTER [Concomitant]
     Route: 048
     Dates: start: 20090701

REACTIONS (4)
  - HYPERTHYROIDISM [None]
  - LIPASE INCREASED [None]
  - PALMAR-PLANTAR ERYTHRODYSAESTHESIA SYNDROME [None]
  - PLATELET COUNT DECREASED [None]
